FAERS Safety Report 23377995 (Version 1)
Quarter: 2024Q1

REPORT INFORMATION
  Report Type: Spontaneous
  Country: CN (occurrence: CN)
  Receive Date: 20240108
  Receipt Date: 20240108
  Transmission Date: 20240409
  Serious: Yes (Other)
  Sender: FDA-Public Use
  Company Number: CN-PFIZER INC-PV202300209710

PATIENT
  Age: 45 Year
  Sex: Female
  Weight: 47 kg

DRUGS (3)
  1. CYTARABINE [Suspect]
     Active Substance: CYTARABINE
     Indication: Lymphoma
     Dosage: 2 G, 2X/DAY, D2
     Route: 041
     Dates: start: 20231210, end: 20231210
  2. CISPLATIN [Suspect]
     Active Substance: CISPLATIN
     Indication: Lymphoma
     Dosage: 40 MG, 1X/DAY, D1
     Route: 041
     Dates: start: 20231209, end: 20231209
  3. CISPLATIN [Suspect]
     Active Substance: CISPLATIN
     Dosage: 30 MG, 1X/DAY D2-D3
     Route: 041
     Dates: start: 20231210, end: 20231211

REACTIONS (5)
  - Myelosuppression [Recovering/Resolving]
  - Pyrexia [Recovering/Resolving]
  - Asthenia [Recovering/Resolving]
  - Diarrhoea [Recovering/Resolving]
  - Mouth ulceration [Recovering/Resolving]

NARRATIVE: CASE EVENT DATE: 20231211
